FAERS Safety Report 8491685-1 (Version None)
Quarter: 2012Q3

REPORT INFORMATION
  Report Type: 
  Country: None (occurrence: None)
  Receive Date: 20120706
  Receipt Date: 20120627
  Transmission Date: 20120928
  Serious: Yes (Death, Hospitalization)
  Sender: FDA-Public Use
  Company Number: AU-BRISTOL-MYERS SQUIBB COMPANY-16722126

PATIENT
  Age: 78 Year
  Sex: Male
  Weight: 98 kg

DRUGS (4)
  1. ASPIRIN [Concomitant]
     Indication: CARDIOVASCULAR EVENT PROPHYLAXIS
  2. IRBESARTAN + HCTZ [Concomitant]
     Indication: HYPERTENSION
     Dosage: 300/12.5MG
  3. IPILIMUMAB [Suspect]
     Indication: METASTATIC MALIGNANT MELANOMA
     Dosage: SECOND DOSE ON 29-SEP-2011
     Route: 042
     Dates: start: 20110909, end: 20111107
  4. METOPROLOL TARTRATE [Concomitant]
     Indication: HYPERTENSION

REACTIONS (4)
  - COLITIS [None]
  - INTESTINAL PERFORATION [None]
  - FUNGAEMIA [None]
  - DEEP VEIN THROMBOSIS [None]
